FAERS Safety Report 7436743-5 (Version None)
Quarter: 2011Q2

REPORT INFORMATION
  Report Type: 
  Country: None (occurrence: None)
  Receive Date: 20110426
  Receipt Date: 20110415
  Transmission Date: 20111010
  Serious: Yes (Hospitalization, Other)
  Sender: FDA-Public Use
  Company Number: BR-ELI_LILLY_AND_COMPANY-BR201103003502

PATIENT
  Sex: Female
  Weight: 52 kg

DRUGS (6)
  1. ASCORBIC ACID [Concomitant]
     Dosage: UNK, 2/D
     Route: 065
  2. BENICAR [Concomitant]
     Indication: HYPERTENSION
     Dosage: 40 MG, DAILY (1/D)
     Route: 048
     Dates: start: 20100701
  3. ZYPREXA [Suspect]
     Indication: ANXIETY
     Dosage: 2.5 MG, DAILY (1/D)
     Route: 048
     Dates: start: 20020101, end: 20110228
  4. ZYPREXA [Suspect]
     Dosage: 2.5 MG, QD
     Route: 048
     Dates: start: 20110301
  5. NORVASC [Concomitant]
     Indication: HYPERTENSION
     Dosage: 5 MEQ, EACH EVENING
     Route: 048
     Dates: start: 20100701
  6. AMARYL [Concomitant]
     Indication: TYPE 2 DIABETES MELLITUS
     Dosage: 2 MG, DAILY (1/D)
     Route: 048
     Dates: start: 20020101

REACTIONS (14)
  - POLYURIA [None]
  - AGITATION [None]
  - URINE ODOUR ABNORMAL [None]
  - URINE ABNORMALITY [None]
  - THROMBOSIS [None]
  - ERYTHEMA [None]
  - HYPERSENSITIVITY [None]
  - ANXIETY [None]
  - HYPERGLYCAEMIA [None]
  - URINARY TRACT INFECTION [None]
  - TYPE 2 DIABETES MELLITUS [None]
  - THIRST [None]
  - POLYDIPSIA [None]
  - FEAR [None]
